FAERS Safety Report 17259195 (Version 1)
Quarter: 2020Q1

REPORT INFORMATION
  Report Type: Spontaneous
  Country: BE (occurrence: BE)
  Receive Date: 20200110
  Receipt Date: 20200110
  Transmission Date: 20200409
  Serious: No
  Sender: FDA-Public Use
  Company Number: BE-JNJFOC-20200111307

PATIENT
  Sex: Female
  Weight: 90 kg

DRUGS (1)
  1. STELARA [Suspect]
     Active Substance: USTEKINUMAB
     Indication: INFLAMMATORY BOWEL DISEASE
     Route: 042
     Dates: start: 201802

REACTIONS (10)
  - Weight decreased [Unknown]
  - Abdominal pain [Unknown]
  - Psoriasis [Unknown]
  - C-reactive protein increased [Unknown]
  - Faecal calprotectin abnormal [Unknown]
  - Off label use [Unknown]
  - Neoplasm [Unknown]
  - Therapeutic response decreased [Unknown]
  - Product use issue [Unknown]
  - Constipation [Unknown]
